FAERS Safety Report 24982603 (Version 5)
Quarter: 2025Q4

REPORT INFORMATION
  Report Type: Report from Study
  Country: JP (occurrence: JP)
  Receive Date: 20250218
  Receipt Date: 20251229
  Transmission Date: 20260118
  Serious: Yes (Other)
  Sender: ALEXION PHARMACEUTICALS
  Company Number: JP-ASTRAZENECA-230073608_011820_P_1

PATIENT
  Age: 12 Year
  Sex: Male
  Weight: 37.3 kg

DRUGS (9)
  1. KOSELUGO [Suspect]
     Active Substance: SELUMETINIB
     Indication: Neurofibromatosis
     Dosage: 30 MILLIGRAM, BID
     Route: 061
     Dates: start: 20230914, end: 20231011
  2. KOSELUGO [Suspect]
     Active Substance: SELUMETINIB
     Dosage: 20 MILLIGRAM, BID
     Route: 061
     Dates: start: 20231012, end: 20231025
  3. KOSELUGO [Suspect]
     Active Substance: SELUMETINIB
     Dosage: 15 MILLIGRAM, BID
     Route: 061
     Dates: start: 20231026, end: 20240103
  4. KOSELUGO [Suspect]
     Active Substance: SELUMETINIB
     Dosage: 10 MILLIGRAM, BID
     Route: 061
     Dates: start: 20240207, end: 20240603
  5. KOSELUGO [Suspect]
     Active Substance: SELUMETINIB
     Dosage: 15 MILLIGRAM, BID
     Route: 061
     Dates: start: 20240604, end: 20240926
  6. KOSELUGO [Suspect]
     Active Substance: SELUMETINIB
     Dosage: 40 MILLIGRAM, QD
     Route: 065
     Dates: start: 20240927, end: 20241117
  7. KOSELUGO [Suspect]
     Active Substance: SELUMETINIB
     Dosage: 50 MILLIGRAM, QD
     Route: 065
     Dates: start: 20241118, end: 20250119
  8. KOSELUGO [Suspect]
     Active Substance: SELUMETINIB
     Dosage: 60 MILLIGRAM, QD
     Route: 065
     Dates: start: 20250120, end: 20250727
  9. KOSELUGO [Suspect]
     Active Substance: SELUMETINIB
     Dosage: 70 MILLIGRAM, QD
     Route: 065
     Dates: start: 20250728

REACTIONS (3)
  - Melaena [Recovering/Resolving]
  - Malaise [Recovering/Resolving]
  - Blood creatine phosphokinase increased [Recovered/Resolved]

NARRATIVE: CASE EVENT DATE: 20230928
